FAERS Safety Report 5717814-8 (Version None)
Quarter: 2008Q2

REPORT INFORMATION
  Report Type: 
  Country: None (occurrence: None)
  Receive Date: 20080425
  Receipt Date: 20080421
  Transmission Date: 20081010
  Serious: Yes (Other)
  Sender: FDA-Public Use
  Company Number: ES-AVENTIS-200811788EU

PATIENT
  Age: 61 Year
  Sex: Male

DRUGS (4)
  1. ENOXAPARIN SODIUM [Suspect]
     Dates: start: 20080307
  2. HEPARIN SODIUM [Suspect]
     Indication: HAEMODIALYSIS
     Dates: start: 20080307, end: 20080307
  3. ENALAPRIL MALEATE [Suspect]
     Indication: HYPERTENSION
     Route: 048
     Dates: start: 20000101
  4. UNKNOWN DRUG [Suspect]
     Indication: HAEMODIALYSIS
     Dates: start: 20080307, end: 20080307

REACTIONS (4)
  - DIARRHOEA [None]
  - HYPOTENSION [None]
  - NAUSEA [None]
  - VOMITING [None]
